FAERS Safety Report 9404481 (Version 1)
Quarter: 2013Q3

REPORT INFORMATION
  Report Type: Spontaneous
  Country: US (occurrence: US)
  Receive Date: 20130717
  Receipt Date: 20130717
  Transmission Date: 20140515
  Serious: No
  Sender: FDA-Public Use
  Company Number: US-PFIZER INC-2013206750

PATIENT
  Age: 39 Year
  Sex: Female

DRUGS (16)
  1. XELJANZ [Suspect]
     Indication: RHEUMATOID ARTHRITIS
     Dosage: 5 MG, 2X/DAY
     Route: 048
  2. CYMBALTA [Concomitant]
     Dosage: 20 MG, UNK
  3. ROPINIROLE [Concomitant]
     Dosage: 5 MG, UNK
  4. SYNTHROID [Concomitant]
     Dosage: 50 UG, UNK
  5. ARAVA [Concomitant]
     Dosage: 10 MG, UNK
  6. TRAMADOL HYDROCHLORIDE [Concomitant]
     Dosage: 50 MG, UNK
  7. GABAPENTIN [Concomitant]
     Dosage: 100 MG, UNK
  8. SIMVASTATIN [Concomitant]
     Dosage: 10 MG, UNK
  9. VIMOVO [Concomitant]
     Dosage: ESOMEPRAZOLE MAGNESIUM 375 MG, NAPROXEN 20 MG
  10. CYCLAFEM [Concomitant]
     Dosage: 1/35, UNK
  11. SULFASALAZIN [Concomitant]
     Dosage: 500 MG, UNK
  12. VITAMIN D [Concomitant]
     Dosage: 400 IU, UNK
  13. VITAMIN C [Concomitant]
     Dosage: 500 MG, UNK
  14. B COMPLEX [Concomitant]
     Dosage: UNK
  15. FOLIC ACID [Concomitant]
     Dosage: UNK
  16. LORTAB [Concomitant]
     Dosage: 2.5-500, UNK

REACTIONS (1)
  - Nausea [Recovered/Resolved]
